FAERS Safety Report 4688872-7 (Version None)
Quarter: 2005Q2

REPORT INFORMATION
  Report Type: 
  Country: None (occurrence: None)
  Receive Date: 20050608
  Receipt Date: 20050425
  Transmission Date: 20051028
  Serious: No
  Sender: FDA-Public Use
  Company Number: 2005-BP-07016BP

PATIENT
  Age: 64 Year
  Sex: Female

DRUGS (10)
  1. SPIRIVA [Suspect]
     Indication: CHRONIC OBSTRUCTIVE PULMONARY DISEASE
     Dosage: 18 MCG (18 MCG, QD), IH
     Route: 055
     Dates: start: 20050324
  2. TENORMIN [Concomitant]
  3. CARDIZEM CD [Concomitant]
  4. ZOCOR [Concomitant]
  5. MIACALCIN [Concomitant]
  6. EVISTA [Concomitant]
  7. ACETYLSALICYLIC ACID SRT [Concomitant]
  8. MULTIVITAMIN [Concomitant]
  9. CALCIUM GLUCONATE [Concomitant]
  10. HYDROCHLOROTHIAZIDE [Concomitant]

REACTIONS (1)
  - BACK PAIN [None]
